FAERS Safety Report 7056095-2 (Version None)
Quarter: 2010Q4

REPORT INFORMATION
  Report Type: 
  Country: None (occurrence: None)
  Receive Date: 20101021
  Receipt Date: 20101012
  Transmission Date: 20110411
  Serious: Yes (Death)
  Sender: FDA-Public Use
  Company Number: US-JNJFOC-20101003522

PATIENT
  Age: 32 Year
  Sex: Female

DRUGS (1)
  1. ACETAMINOPHEN/ DIPHENHYDRAMINE [Suspect]
     Indication: PRODUCT USED FOR UNKNOWN INDICATION
     Route: 048

REACTIONS (3)
  - HYPOTENSION [None]
  - LACTIC ACIDOSIS [None]
  - OVERDOSE [None]
